FAERS Safety Report 7115787-7 (Version None)
Quarter: 2010Q4

REPORT INFORMATION
  Report Type: 
  Country: None (occurrence: None)
  Receive Date: 20101122
  Receipt Date: 20101115
  Transmission Date: 20110411
  Serious: Yes (Other)
  Sender: FDA-Public Use
  Company Number: US-PFIZER INC-2010148704

PATIENT
  Sex: Male
  Weight: 83.447 kg

DRUGS (6)
  1. LIPITOR [Suspect]
     Indication: BLOOD CHOLESTEROL INCREASED
     Dosage: 40 MG, 1X/DAY
     Route: 048
     Dates: end: 20101110
  2. LEVAQUIN [Concomitant]
     Dosage: 500 MG, UNK
  3. RANEXA [Concomitant]
     Indication: CARDIAC DISORDER
     Dosage: 1000 MG, UNK
  4. IODOSORB [Concomitant]
     Dosage: 500 MG, UNK
  5. WARFARIN [Concomitant]
     Indication: CARDIAC DISORDER
     Dosage: 6 MG, UNK
  6. TOPROL-XL [Concomitant]
     Indication: HYPERTENSION
     Dosage: 50 MG, UNK

REACTIONS (4)
  - ASTHENIA [None]
  - GAIT DISTURBANCE [None]
  - HEADACHE [None]
  - MYALGIA [None]
